FAERS Safety Report 19647170 (Version 1)
Quarter: 2021Q3

REPORT INFORMATION
  Report Type: Spontaneous
  Country: JP (occurrence: JP)
  Receive Date: 20210802
  Receipt Date: 20210802
  Transmission Date: 20211014
  Serious: Yes (Hospitalization)
  Sender: FDA-Public Use
  Company Number: JP-B.I. PHARMACEUTICALS,INC./RIDGEFIELD-2021-BI-118886

PATIENT
  Age: 78 Year
  Sex: Female

DRUGS (1)
  1. MIRAPEX [Suspect]
     Active Substance: PRAMIPEXOLE DIHYDROCHLORIDE
     Indication: PARKINSON^S DISEASE
     Dosage: 3.75 MG/DAY, 1.5MG 2.5 TABLETS DAILY
     Route: 048

REACTIONS (2)
  - Wrong technique in product usage process [Unknown]
  - Dehydration [Unknown]

NARRATIVE: CASE EVENT DATE: 20210730
